FAERS Safety Report 21616610 (Version 1)
Quarter: 2022Q4

REPORT INFORMATION
  Report Type: Report from Study
  Country: US (occurrence: US)
  Receive Date: 20221118
  Receipt Date: 20221118
  Transmission Date: 20230112
  Serious: Yes (Other)
  Sender: FDA-Public Use
  Company Number: US-BRISTOL-MYERS SQUIBB COMPANY-2022-137761

PATIENT
  Age: 80 Year
  Sex: Female
  Weight: 58.967 kg

DRUGS (1)
  1. ORENCIA [Suspect]
     Active Substance: ABATACEPT
     Indication: Rheumatoid arthritis
     Route: 042

REACTIONS (1)
  - Amyotrophic lateral sclerosis [Unknown]

NARRATIVE: CASE EVENT DATE: 20220801
